FAERS Safety Report 8011009-3 (Version None)
Quarter: 2011Q4

REPORT INFORMATION
  Report Type: 
  Country: None (occurrence: None)
  Receive Date: 20111228
  Receipt Date: 20111108
  Transmission Date: 20120403
  Serious: Yes (Death, Hospitalization)
  Sender: FDA-Public Use
  Company Number: US-ROCHE-789685

PATIENT
  Sex: Male

DRUGS (14)
  1. PROPRANOLOL [Concomitant]
  2. LANSOPRAZOLE [Concomitant]
     Dates: start: 20100301, end: 20100824
  3. MEGAVITAMINS [Concomitant]
  4. BENZONATATE [Concomitant]
  5. SPIRONOLACTONE [Concomitant]
  6. VICODIN [Concomitant]
     Dates: start: 20101208, end: 20101208
  7. RANITIDINE [Concomitant]
  8. PEGINTERFERON ALFA-2A [Suspect]
     Indication: HEPATITIS C
     Dosage: DOSE REPORTED AS: 180 MICROGRAM 1 DAY
     Route: 058
     Dates: start: 20100920, end: 20110411
  9. BLINDED BMS-790052 (HCV NS5A INHIBITOR) [Suspect]
     Indication: HEPATITIS C
     Route: 048
     Dates: start: 20100910, end: 20110304
  10. DILAUDID [Concomitant]
     Dates: start: 20101208, end: 20101208
  11. CLINDAMYCIN [Concomitant]
     Dates: start: 20101208, end: 20110103
  12. ACETAMINOPHEN [Concomitant]
  13. COPEGUS [Suspect]
     Indication: HEPATITIS C
     Route: 048
     Dates: start: 20100920, end: 20110411
  14. URSO 250 [Concomitant]

REACTIONS (9)
  - SEPSIS [None]
  - SHOCK HAEMORRHAGIC [None]
  - TROPONIN INCREASED [None]
  - KLEBSIELLA TEST POSITIVE [None]
  - RENAL FAILURE [None]
  - HEPATIC FAILURE [None]
  - PERITONITIS BACTERIAL [None]
  - HEPATIC ENCEPHALOPATHY [None]
  - VARICES OESOPHAGEAL [None]
